FAERS Safety Report 5632109-9 (Version None)
Quarter: 2008Q1

REPORT INFORMATION
  Report Type: 
  Country: None (occurrence: None)
  Receive Date: 20080220
  Receipt Date: 20080212
  Transmission Date: 20080703
  Serious: Yes (Hospitalization)
  Sender: FDA-Public Use
  Company Number: B0508758A

PATIENT
  Age: 5 Year
  Sex: Female

DRUGS (4)
  1. AUGMENTIN '125' [Suspect]
     Indication: LOWER RESPIRATORY TRACT INFECTION
     Dosage: 8ML THREE TIMES PER DAY
     Route: 048
     Dates: start: 20071020, end: 20071028
  2. AEROLIN [Concomitant]
     Route: 065
     Dates: start: 20071020, end: 20071028
  3. FLIXOTIDE [Concomitant]
     Route: 065
  4. UNKNOWN DRUG [Concomitant]
     Route: 065
     Dates: start: 20071020, end: 20071028

REACTIONS (5)
  - COAGULATION TIME PROLONGED [None]
  - HYPERBILIRUBINAEMIA [None]
  - JAUNDICE [None]
  - OCULAR ICTERUS [None]
  - TRANSAMINASES INCREASED [None]
